FAERS Safety Report 5823648-6 (Version None)
Quarter: 2008Q3

REPORT INFORMATION
  Report Type: 
  Country: None (occurrence: None)
  Receive Date: 20080725
  Receipt Date: 20080717
  Transmission Date: 20090109
  Serious: Yes (Other)
  Sender: FDA-Public Use
  Company Number: US-PFIZER INC-2008008917

PATIENT
  Sex: Female
  Weight: 61.2 kg

DRUGS (4)
  1. XALATAN [Suspect]
  2. LUMIGAN [Suspect]
  3. XAL-EASE [Suspect]
  4. ALL OTHER THERAPEUTIC PRODUCTS [Concomitant]

REACTIONS (5)
  - BLINDNESS [None]
  - INCORRECT DRUG ADMINISTRATION DURATION [None]
  - OCULAR HYPERAEMIA [None]
  - OPTIC NERVE DISORDER [None]
  - OVERDOSE [None]
